FAERS Safety Report 26212008 (Version 1)
Quarter: 2025Q4

REPORT INFORMATION
  Report Type: Spontaneous
  Country: US (occurrence: US)
  Receive Date: 20251230
  Receipt Date: 20251230
  Transmission Date: 20260118
  Serious: Yes (Other)
  Sender: RANBAXY
  Company Number: US-SUN PHARMACEUTICAL INDUSTRIES INC-2025R1-544015

PATIENT
  Age: 16 Month
  Sex: Male

DRUGS (5)
  1. AMPHOTERICIN B [Suspect]
     Active Substance: AMPHOTERICIN B
     Indication: Meningoencephalitis amoebic
     Dosage: UNK
     Route: 065
  2. DEXAMETHASONE [Suspect]
     Active Substance: DEXAMETHASONE
     Indication: Meningoencephalitis amoebic
     Dosage: UNK
     Route: 065
  3. FLUCONAZOLE [Suspect]
     Active Substance: FLUCONAZOLE
     Indication: Meningoencephalitis amoebic
     Dosage: UNK
     Route: 065
  4. MILTEFOSINE [Suspect]
     Active Substance: MILTEFOSINE
     Indication: Meningoencephalitis amoebic
     Dosage: UNK
     Route: 065
  5. RIFAMPIN [Suspect]
     Active Substance: RIFAMPIN
     Indication: Meningoencephalitis amoebic
     Dosage: UNK
     Route: 065

REACTIONS (1)
  - Condition aggravated [Unknown]
